FAERS Safety Report 8291609-6 (Version None)
Quarter: 2012Q2

REPORT INFORMATION
  Report Type: 
  Country: None (occurrence: None)
  Receive Date: 20120417
  Receipt Date: 20120105
  Transmission Date: 20120825
  Serious: No
  Sender: FDA-Public Use
  Company Number: US-ASTRAZENECA-2012SE01211

PATIENT
  Sex: Female

DRUGS (3)
  1. NEXIUM [Suspect]
     Indication: DIARRHOEA
     Route: 048
     Dates: start: 20111230
  2. NEXIUM [Suspect]
     Indication: APHAGIA
     Route: 048
     Dates: start: 20111230
  3. NEXIUM [Suspect]
     Indication: DYSPEPSIA
     Route: 048
     Dates: start: 20111230

REACTIONS (6)
  - EYE DISORDER [None]
  - RETCHING [None]
  - PHOTOPHOBIA [None]
  - HEADACHE [None]
  - VOMITING [None]
  - MALAISE [None]
